FAERS Safety Report 6959207-1 (Version None)
Quarter: 2010Q3

REPORT INFORMATION
  Report Type: 
  Country: None (occurrence: None)
  Receive Date: 20100831
  Receipt Date: 20100823
  Transmission Date: 20110219
  Serious: Yes (Other)
  Sender: FDA-Public Use
  Company Number: IE-AMGEN-US418764

PATIENT
  Sex: Female
  Weight: 78 kg

DRUGS (9)
  1. ENBREL [Suspect]
     Indication: ANKYLOSING SPONDYLITIS
     Route: 058
     Dates: start: 20100224, end: 20100529
  2. AMITRIPTYLINE HCL [Concomitant]
     Indication: PAIN
     Route: 048
     Dates: start: 20100320, end: 20100323
  3. LANSOPRAZOLE [Concomitant]
     Indication: GASTROOESOPHAGEAL REFLUX DISEASE
     Route: 048
     Dates: start: 20100417
  4. ISONIAZID [Concomitant]
     Dosage: UNKNOWN
     Dates: start: 20100125
  5. TYLEX [Concomitant]
     Indication: PAIN
     Dosage: TWICE DAILY AS REQUIRED
     Route: 048
     Dates: start: 20100201
  6. AUGMENTIN '125' [Concomitant]
     Indication: LOWER RESPIRATORY TRACT INFECTION
     Route: 048
     Dates: start: 20100417, end: 20100421
  7. SWINE FLU VACCINE, MONOVALENT [Concomitant]
     Indication: PROPHYLAXIS
     Dosage: UNKNOWN
     Dates: start: 20100211
  8. RIFAMPICIN [Concomitant]
     Route: 048
     Dates: start: 20100225, end: 20100324
  9. IBUFEN [Concomitant]
     Indication: PAIN
     Route: 048
     Dates: start: 20100201

REACTIONS (9)
  - DERMATITIS [None]
  - DEVICE MALFUNCTION [None]
  - FATIGUE [None]
  - LOWER RESPIRATORY TRACT INFECTION [None]
  - NAUSEA [None]
  - OROPHARYNGEAL PAIN [None]
  - PRODUCTIVE COUGH [None]
  - PRURITUS [None]
  - URTICARIA [None]
